FAERS Safety Report 4987940-X (Version None)
Quarter: 2006Q2

REPORT INFORMATION
  Report Type: 
  Country: None (occurrence: None)
  Receive Date: 20060424
  Receipt Date: 20060421
  Transmission Date: 20061013
  Serious: Yes (Hospitalization)
  Sender: FDA-Public Use
  Company Number: 2006-04-0393

PATIENT
  Age: 26 Year
  Sex: Female

DRUGS (7)
  1. PEGASYS [Suspect]
     Indication: HEPATITIS C
     Dosage: 180 MCG QW SUBCUTANEOUS
     Route: 058
     Dates: start: 20020401
  2. REBETOL [Suspect]
     Indication: HEPATITIS C
     Dosage: 400 MG BID ORAL
     Route: 048
     Dates: start: 20020401
  3. GRANOCYTE (LENOGRASTIM) [Concomitant]
  4. NEORECORMON (EPOETINE BETA) [Concomitant]
  5. SAROTEN RETARD TABLETS [Concomitant]
  6. DIAZEPAM [Concomitant]
  7. ACETAMINOPHEN [Concomitant]

REACTIONS (10)
  - AGITATION [None]
  - ASTHENIA [None]
  - EXCITABILITY [None]
  - PANIC REACTION [None]
  - PSYCHIATRIC SYMPTOM [None]
  - RESTLESSNESS [None]
  - SOMATISATION DISORDER [None]
  - THYROID FUNCTION TEST ABNORMAL [None]
  - TRI-IODOTHYRONINE FREE INCREASED [None]
  - TRI-IODOTHYRONINE INCREASED [None]
